FAERS Safety Report 25488585 (Version 1)
Quarter: 2025Q2

REPORT INFORMATION
  Report Type: Report from Study
  Country: US (occurrence: US)
  Receive Date: 20250627
  Receipt Date: 20250627
  Transmission Date: 20250717
  Serious: Yes (Hospitalization)
  Sender: EISAI
  Company Number: US-Eisai-EC-2025-191831

PATIENT
  Age: 60 Year
  Sex: Male

DRUGS (4)
  1. LENVIMA [Suspect]
     Active Substance: LENVATINIB
     Indication: Renal cancer
     Dates: start: 20250505
  2. LENVIMA [Suspect]
     Active Substance: LENVATINIB
     Dates: start: 20250610
  3. EVEROLIMUS [Concomitant]
     Active Substance: EVEROLIMUS
     Indication: Renal cancer
  4. CABOMETYX [Concomitant]
     Active Substance: CABOZANTINIB S-MALATE
     Indication: Product used for unknown indication

REACTIONS (1)
  - Pneumonitis [Recovering/Resolving]

NARRATIVE: CASE EVENT DATE: 20250501
